FAERS Safety Report 23848813 (Version 2)
Quarter: 2024Q2

REPORT INFORMATION
  Report Type: Spontaneous
  Country: ES (occurrence: ES)
  Receive Date: 20240513
  Receipt Date: 20240522
  Transmission Date: 20240716
  Serious: Yes (Life-Threatening, Hospitalization, Other)
  Sender: FDA-Public Use
  Company Number: ES-OTSUKA-2024_007425

PATIENT
  Age: 16 Year
  Sex: Female

DRUGS (12)
  1. ARIPIPRAZOLE [Suspect]
     Active Substance: ARIPIPRAZOLE
     Indication: Trisomy 21
     Dosage: 5 MG, QD
     Route: 048
     Dates: start: 2021
  2. ARIPIPRAZOLE [Suspect]
     Active Substance: ARIPIPRAZOLE
     Indication: Antipsychotic therapy
  3. ATROPINE [Suspect]
     Active Substance: ATROPINE\ATROPINE SULFATE
     Indication: Extrasystoles
     Dosage: 0.5 MG
     Route: 065
     Dates: start: 2023
  4. SERTRALINE [Suspect]
     Active Substance: SERTRALINE HYDROCHLORIDE
     Indication: Trisomy 21
     Dosage: 100 MG, QD
     Route: 048
     Dates: start: 2021
  5. SERTRALINE [Suspect]
     Active Substance: SERTRALINE HYDROCHLORIDE
     Indication: Developmental regression
  6. LORAZEPAM [Concomitant]
     Active Substance: LORAZEPAM
     Indication: Trisomy 21
     Dosage: 2 MG, QD
     Route: 048
     Dates: start: 2021
  7. LORAZEPAM [Concomitant]
     Active Substance: LORAZEPAM
     Indication: Antipsychotic therapy
     Dosage: 15 MG, QD
     Route: 048
     Dates: start: 2021
  8. LORAZEPAM [Concomitant]
     Active Substance: LORAZEPAM
     Dosage: 100 MG, QD
     Route: 048
  9. PROPOFOL [Concomitant]
     Active Substance: PROPOFOL
     Indication: Induction of anaesthesia
     Dosage: UNK
     Route: 065
  10. SUCCINYLCHOLINE [Concomitant]
     Active Substance: SUCCINYLCHOLINE
     Indication: Muscle relaxant therapy
     Dosage: UNK
     Route: 065
  11. THIOPENTAL [Concomitant]
     Active Substance: THIOPENTAL
     Indication: Induction of anaesthesia
     Dosage: UNK
     Route: 065
  12. FLUOXETINE [Concomitant]
     Active Substance: FLUOXETINE HYDROCHLORIDE
     Indication: Trisomy 21
     Dosage: 40 MG, QD
     Route: 048
     Dates: start: 2021

REACTIONS (9)
  - Hypersomnia [Recovered/Resolved]
  - Extrapyramidal disorder [Recovered/Resolved]
  - Hyperhidrosis [Recovered/Resolved]
  - Hypertensive crisis [Unknown]
  - Acute pulmonary oedema [Unknown]
  - Respiratory failure [Unknown]
  - Stress cardiomyopathy [Recovered/Resolved]
  - Therapy non-responder [Unknown]
  - Drug ineffective for unapproved indication [Unknown]

NARRATIVE: CASE EVENT DATE: 20230101
